FAERS Safety Report 6017164-9 (Version None)
Quarter: 2008Q4

REPORT INFORMATION
  Report Type: 
  Country: None (occurrence: None)
  Receive Date: 20081223
  Receipt Date: 20081210
  Transmission Date: 20090506
  Serious: Yes (Hospitalization)
  Sender: FDA-Public Use
  Company Number: BR-ROCHE-573481

PATIENT
  Sex: Male
  Weight: 2.9 kg

DRUGS (6)
  1. RIVOTRIL [Suspect]
     Indication: PANIC DISORDER
     Dosage: DOASGE REGIMEN: 2TAB/DAY,
     Dates: start: 20070101, end: 20080101
  2. RIVOTRIL [Suspect]
     Dosage: DOSAGE REGIMEN: 1TAB/DAY
     Dates: start: 20080101, end: 20080101
  3. RIVOTRIL [Suspect]
     Dosage: DOSAGE REGIMEN: 2 TAB/DAY
     Dates: start: 20080101
  4. SERTRALINE [Concomitant]
     Indication: DEPRESSION
     Dates: end: 20080101
  5. FOLIC ACID [Concomitant]
  6. FERROUS SULFATE TAB [Concomitant]

REACTIONS (1)
  - PULMONARY HYPERTENSION [None]
